FAERS Safety Report 10056626 (Version 2)
Quarter: 2014Q2

REPORT INFORMATION
  Report Type: Spontaneous
  Country: US (occurrence: US)
  Receive Date: 20140403
  Receipt Date: 20140603
  Transmission Date: 20141212
  Serious: Yes (Other)
  Sender: FDA-Public Use
  Company Number: US-BAYER-2014-049718

PATIENT
  Age: 34 Year
  Sex: Female

DRUGS (1)
  1. YASMIN [Suspect]

REACTIONS (2)
  - Deep vein thrombosis [Not Recovered/Not Resolved]
  - Deep vein thrombosis [Recovered/Resolved]
